FAERS Safety Report 5162403-X (Version None)
Quarter: 2006Q4

REPORT INFORMATION
  Report Type: 
  Country: None (occurrence: None)
  Receive Date: 20061128
  Receipt Date: 20061128
  Transmission Date: 20070319
  Serious: Yes (Other)
  Sender: FDA-Public Use
  Company Number: None

PATIENT
  Age: 58 Year
  Sex: Male
  Weight: 89.8122 kg

DRUGS (16)
  1. SIMVASTATIN [Suspect]
     Indication: HYPERLIPIDAEMIA
     Dosage: 40 MG PO HS
     Route: 048
     Dates: start: 20050912, end: 20060712
  2. ACETAMINOPHEN [Concomitant]
  3. AMLODIPINE BESYLATE [Concomitant]
  4. ASPIRIN [Concomitant]
  5. CHLORTHALIDONE [Concomitant]
  6. CLOPIDOGREL [Concomitant]
  7. FERROUS SULFATE TAB [Concomitant]
  8. HYDRALAZINE HCL [Concomitant]
  9. ISOSORBIDE DINITRATE [Concomitant]
  10. LORATADINE [Concomitant]
  11. METHOCARBAMOL [Concomitant]
  12. METOPROLOL SUCCINATE [Concomitant]
  13. NITROGLYCERIN SL [Concomitant]
  14. TERAZOSIN HCL [Concomitant]
  15. OMEPRAZOLE SA [Concomitant]
  16. COUMADIN [Concomitant]

REACTIONS (2)
  - CHROMATURIA [None]
  - MYALGIA [None]
